FAERS Safety Report 7588618-9 (Version None)
Quarter: 2011Q3

REPORT INFORMATION
  Report Type: 
  Country: None (occurrence: None)
  Receive Date: 20110705
  Receipt Date: 20110623
  Transmission Date: 20111222
  Serious: Yes (Other)
  Sender: FDA-Public Use
  Company Number: US-JNJFOC-20110611737

PATIENT
  Sex: Male
  Weight: 81.65 kg

DRUGS (8)
  1. STOOL SOFTENER [Concomitant]
     Indication: ABNORMAL FAECES
     Route: 048
  2. TOVIAZ [Concomitant]
     Indication: URINARY TRACT DISORDER
     Route: 065
     Dates: start: 20110519, end: 20110619
  3. OMEPRAZOLE [Concomitant]
     Indication: GASTRIC DISORDER
     Route: 048
     Dates: start: 20100101
  4. ASPIRIN [Suspect]
     Indication: CARDIAC DISORDER
     Route: 048
  5. DIGOXIN [Concomitant]
     Indication: CARDIAC ASSISTANCE DEVICE USER
     Route: 048
  6. ZYTIGA [Suspect]
     Indication: PROSTATE CANCER
     Route: 048
     Dates: start: 20110522
  7. PREDNISONE [Concomitant]
     Indication: PROSTATE CANCER
     Route: 048
     Dates: start: 20110522
  8. ATENOLOL [Concomitant]
     Indication: BLOOD PRESSURE
     Route: 048

REACTIONS (1)
  - EPISTAXIS [None]
